FAERS Safety Report 19259906 (Version 1)
Quarter: 2021Q2

REPORT INFORMATION
  Report Type: Spontaneous
  Country: BR (occurrence: BR)
  Receive Date: 20210514
  Receipt Date: 20210514
  Transmission Date: 20210717
  Serious: Yes (Hospitalization, Other)
  Sender: FDA-Public Use
  Company Number: BR-HQ SPECIALTY-BR-2021INT000080

PATIENT
  Age: 2 Month
  Sex: Male

DRUGS (1)
  1. DEXMEDETOMIDINE HYDROCHLORIDE. [Suspect]
     Active Substance: DEXMEDETOMIDINE HYDROCHLORIDE
     Indication: SEDATIVE THERAPY
     Dosage: MAXIMUM DOSE OF 1 ?G/KG/HOUR; TRIED TO DECREASE TITRATION SEVERAL TIMES WITHOUT SUCCESS
     Route: 065

REACTIONS (5)
  - Tachycardia [Recovered/Resolved]
  - Vomiting [Recovered/Resolved]
  - Product administered to patient of inappropriate age [Unknown]
  - Withdrawal syndrome [Recovered/Resolved]
  - Agitation [Recovered/Resolved]
